FAERS Safety Report 21055897 (Version 1)
Quarter: 2022Q3

REPORT INFORMATION
  Report Type: Spontaneous
  Country: CN (occurrence: CN)
  Receive Date: 20220708
  Receipt Date: 20220708
  Transmission Date: 20221027
  Serious: Yes (Death, Life-Threatening, Other)
  Sender: FDA-Public Use
  Company Number: CN-AMGEN-CHNSP2022114498

PATIENT

DRUGS (7)
  1. FILGRASTIM [Suspect]
     Active Substance: FILGRASTIM
     Indication: Prophylaxis
     Dosage: 5 MICROGRAM/KILOGRAM, QD
     Route: 065
  2. VENETOCLAX [Concomitant]
     Active Substance: VENETOCLAX
     Dosage: UNK
     Route: 048
  3. ACLARUBICIN [Concomitant]
     Active Substance: ACLARUBICIN
     Dosage: UNK
     Route: 042
  4. CYTARABINE [Concomitant]
     Active Substance: CYTARABINE
     Dosage: UNK
     Route: 042
  5. OMACETAXINE MEPESUCCINATE [Concomitant]
     Active Substance: OMACETAXINE MEPESUCCINATE
     Dosage: UNK
     Route: 065
  6. DAUNORUBICIN [Concomitant]
     Active Substance: DAUNORUBICIN
     Dosage: UNK
     Route: 065
  7. AZACITIDINE [Concomitant]
     Active Substance: AZACITIDINE
     Dosage: UNK
     Route: 065

REACTIONS (25)
  - Cerebral haemorrhage [Fatal]
  - Neutropenia [Recovering/Resolving]
  - Febrile neutropenia [Unknown]
  - White blood cell count decreased [Unknown]
  - Acute myeloid leukaemia recurrent [Unknown]
  - Pneumonia [Unknown]
  - Thrombocytopenia [Recovering/Resolving]
  - Sepsis [Unknown]
  - Diarrhoea [Unknown]
  - Fatigue [Unknown]
  - Anaemia [Unknown]
  - Abdominal pain [Unknown]
  - Cardiac disorder [Unknown]
  - Electrocardiogram abnormal [Unknown]
  - Gene mutation [Unknown]
  - Blood creatinine increased [Unknown]
  - Contusion [Unknown]
  - Purpura [Unknown]
  - Blood bilirubin increased [Unknown]
  - Petechiae [Unknown]
  - Mucosal inflammation [Unknown]
  - Rash [Unknown]
  - Headache [Unknown]
  - Dizziness [Unknown]
  - Nausea [Unknown]
